FAERS Safety Report 21658245 (Version 1)
Quarter: 2022Q4

REPORT INFORMATION
  Report Type: Report from Study
  Country: US (occurrence: US)
  Receive Date: 20221129
  Receipt Date: 20221129
  Transmission Date: 20230113
  Serious: No
  Sender: FDA-Public Use
  Company Number: US-ABBVIE-22K-163-4523985-00

PATIENT
  Sex: Female

DRUGS (1)
  1. IMBRUVICA [Suspect]
     Active Substance: IBRUTINIB
     Indication: Chronic lymphocytic leukaemia
     Dosage: STRENGTH: 140 MILLIGRAM
     Route: 048
     Dates: start: 202206, end: 2022

REACTIONS (8)
  - Peripheral swelling [Unknown]
  - Ageusia [Not Recovered/Not Resolved]
  - Limb discomfort [Unknown]
  - Neuropathy peripheral [Unknown]
  - Balance disorder [Unknown]
  - Arthralgia [Recovered/Resolved]
  - Anosmia [Not Recovered/Not Resolved]
  - Pain in extremity [Recovered/Resolved]
